FAERS Safety Report 6198049-4 (Version None)
Quarter: 2009Q2

REPORT INFORMATION
  Report Type: 
  Country: None (occurrence: None)
  Receive Date: 20090521
  Receipt Date: 20090507
  Transmission Date: 20091009
  Serious: Yes (Hospitalization)
  Sender: FDA-Public Use
  Company Number: TR-ELI_LILLY_AND_COMPANY-TR200905004035

PATIENT
  Age: 70 Year

DRUGS (4)
  1. HUMALOG MIX 75/25 [Suspect]
     Indication: DIABETES MELLITUS
     Dosage: 16 IU, EACH MORNING
     Route: 058
  2. HUMALOG MIX 75/25 [Suspect]
     Dosage: 8 IU, EACH EVENING
     Route: 058
  3. DIAFORMIN [Concomitant]
     Indication: DIABETES MELLITUS
  4. ALPHA LIPOIC ACID [Concomitant]
     Dosage: 600 MG, DAILY (1/D)

REACTIONS (1)
  - RETINAL TEAR [None]
